FAERS Safety Report 4930784-5 (Version None)
Quarter: 2006Q1

REPORT INFORMATION
  Report Type: 
  Country: None (occurrence: None)
  Receive Date: 20060227
  Receipt Date: 20060215
  Transmission Date: 20060701
  Serious: Yes (Hospitalization)
  Sender: FDA-Public Use
  Company Number: 2002120178PT

PATIENT
  Age: 4 Year
  Sex: Female
  Weight: 20 kg

DRUGS (3)
  1. CELEBREX [Suspect]
     Indication: ILL-DEFINED DISORDER
  2. ALPRAZOLAM [Suspect]
     Indication: ILL-DEFINED DISORDER
  3. SILDENAFIL CITRATE [Suspect]
     Indication: ILL-DEFINED DISORDER

REACTIONS (10)
  - ACCIDENTAL DRUG INTAKE BY CHILD [None]
  - COMA [None]
  - DYSARTHRIA [None]
  - HYPOTENSION [None]
  - HYPOTONIA [None]
  - MULTIPLE DRUG OVERDOSE ACCIDENTAL [None]
  - RESPIRATORY DEPRESSION [None]
  - RESPIRATORY FAILURE [None]
  - SOMNOLENCE [None]
  - STUPOR [None]
